FAERS Safety Report 6328400-3 (Version None)
Quarter: 2009Q3

REPORT INFORMATION
  Report Type: 
  Country: None (occurrence: None)
  Receive Date: 20090825
  Receipt Date: 20090316
  Transmission Date: 20100115
  Serious: No
  Sender: FDA-Public Use
  Company Number: US-ABBOTT-09P-163-0562883-00

PATIENT
  Sex: Female
  Weight: 53.572 kg

DRUGS (3)
  1. SYNTHROID [Suspect]
     Indication: HYPOTHYROIDISM
     Route: 048
     Dates: start: 19940101
  2. IRON [Concomitant]
     Indication: ANAEMIA
  3. CYTOMEL [Concomitant]
     Indication: HYPOTHYROIDISM
     Route: 048
     Dates: start: 20090301

REACTIONS (4)
  - COELIAC DISEASE [None]
  - DIARRHOEA [None]
  - FATIGUE [None]
  - WEIGHT DECREASED [None]
